FAERS Safety Report 4377508-0 (Version None)
Quarter: 2004Q2

REPORT INFORMATION
  Report Type: 
  Country: None (occurrence: None)
  Receive Date: 20040609
  Receipt Date: 20040511
  Transmission Date: 20050107
  Serious: No
  Sender: FDA-Public Use
  Company Number: 2004213243US

PATIENT
  Age: 54 Year
  Sex: Female

DRUGS (4)
  1. BEXTRA [Suspect]
     Indication: JOINT SWELLING
     Dosage: 20 MG, QD
  2. SYNTHROID (LEVOTHYROXINE SOIDUM) [Concomitant]
  3. PREVACID [Concomitant]
  4. REGLAN [Concomitant]

REACTIONS (1)
  - JOINT SWELLING [None]
